FAERS Safety Report 6419441-6 (Version None)
Quarter: 2009Q4

REPORT INFORMATION
  Report Type: 
  Country: None (occurrence: None)
  Receive Date: 20091013
  Receipt Date: 20090807
  Transmission Date: 20100525
  Serious: Yes (Hospitalization)
  Sender: FDA-Public Use
  Company Number: 1000005925

PATIENT
  Age: 16 Year
  Sex: Female

DRUGS (5)
  1. LEXAPRO [Suspect]
     Indication: ANXIETY
     Dosage: 10 MG (10 MG, 1 IN 1 D), ORAL, 15 MG (15 MG, 1 IN 1 D), ORAL
     Route: 048
     Dates: start: 20080101
  2. LEXAPRO [Suspect]
     Indication: DEPRESSION
     Dosage: 10 MG (10 MG, 1 IN 1 D), ORAL, 15 MG (15 MG, 1 IN 1 D), ORAL
     Route: 048
     Dates: start: 20080101
  3. LEXAPRO [Suspect]
     Indication: ANXIETY
     Dosage: 10 MG (10 MG, 1 IN 1 D), ORAL, 15 MG (15 MG, 1 IN 1 D), ORAL
     Route: 048
     Dates: start: 20090101
  4. LEXAPRO [Suspect]
     Indication: DEPRESSION
     Dosage: 10 MG (10 MG, 1 IN 1 D), ORAL, 15 MG (15 MG, 1 IN 1 D), ORAL
     Route: 048
     Dates: start: 20090101
  5. PROZAC [Concomitant]

REACTIONS (7)
  - ABDOMINAL PAIN UPPER [None]
  - ANXIETY [None]
  - DEPRESSION [None]
  - DIARRHOEA [None]
  - DRUG INEFFECTIVE [None]
  - EATING DISORDER [None]
  - FATIGUE [None]
